FAERS Safety Report 9449175 (Version 1)
Quarter: 2013Q3

REPORT INFORMATION
  Report Type: Spontaneous
  Country: US (occurrence: None)
  Receive Date: 20130806
  Receipt Date: 20130806
  Transmission Date: 20140515
  Serious: Yes (Hospitalization)
  Sender: FDA-Public Use
  Company Number: LIT-13-0029

PATIENT
  Age: 38 Year
  Sex: Female

DRUGS (1)
  1. LEVETIRACETAM [Suspect]

REACTIONS (5)
  - Overdose [None]
  - Coma [None]
  - Hyporeflexia [None]
  - Hypotonia [None]
  - Respiratory depression [None]
